FAERS Safety Report 14956875 (Version 1)
Quarter: 2018Q2

REPORT INFORMATION
  Report Type: Spontaneous
  Country: JP (occurrence: JP)
  Receive Date: 20180531
  Receipt Date: 20180531
  Transmission Date: 20180711
  Serious: Yes (Life-Threatening, Hospitalization)
  Sender: FDA-Public Use
  Company Number: JP-ACTELION-A-CH2017-151220

PATIENT
  Age: 29 Year
  Sex: Female

DRUGS (21)
  1. EPOPROSTENOL ACT [Suspect]
     Active Substance: EPOPROSTENOL
     Dosage: 60 NG/KG, PER MIN
     Route: 042
     Dates: start: 20170126
  2. EPOPROSTENOL ACT [Suspect]
     Active Substance: EPOPROSTENOL
     Dosage: 67 NG/KG, PER MIN
     Route: 042
     Dates: start: 20170223
  3. DOBUTAMINE [Concomitant]
     Active Substance: DOBUTAMINE\DOBUTAMINE HYDROCHLORIDE
  4. OXYGEN. [Concomitant]
     Active Substance: OXYGEN
  5. EPOPROSTENOL ACT [Suspect]
     Active Substance: EPOPROSTENOL
     Dosage: 41 NG/KG, PER MIN
     Route: 042
     Dates: start: 20161111
  6. OPSUMIT [Concomitant]
     Active Substance: MACITENTAN
     Indication: PULMONARY HYPERTENSION
     Dosage: 5 MG, OD
     Route: 048
     Dates: start: 20160603, end: 20160616
  7. PILSICAINIDE HYDROCHLORIDE [Concomitant]
     Active Substance: PILSICAINIDE HYDROCHLORIDE
     Dosage: UNK
  8. EPOPROSTENOL ACT [Suspect]
     Active Substance: EPOPROSTENOL
     Indication: PULMONARY ARTERIAL HYPERTENSION
     Dosage: 40 NG/KG, PER MIN
     Route: 042
     Dates: start: 20151211
  9. EPOPROSTENOL ACT [Suspect]
     Active Substance: EPOPROSTENOL
     Dosage: 73 NG/KG, PER MIN
     Route: 042
     Dates: start: 20170414
  10. TRACLEER [Suspect]
     Active Substance: BOSENTAN
     Indication: PULMONARY ARTERIAL HYPERTENSION
     Dosage: 250 MG, UNK
     Route: 048
     Dates: end: 20160506
  11. REVATIO [Concomitant]
     Active Substance: SILDENAFIL CITRATE
  12. FUROSEMIDE. [Concomitant]
     Active Substance: FUROSEMIDE
  13. EPOPROSTENOL ACT [Suspect]
     Active Substance: EPOPROSTENOL
     Dosage: 104 NG/KG, PER MIN
     Route: 042
     Dates: start: 20170530
  14. OPSUMIT [Concomitant]
     Active Substance: MACITENTAN
     Dosage: 10 MG, OD
     Dates: start: 20160617
  15. SAMSCA [Concomitant]
     Active Substance: TOLVAPTAN
  16. SPIRONOLACTONE. [Concomitant]
     Active Substance: SPIRONOLACTONE
  17. EPOPROSTENOL ACT [Suspect]
     Active Substance: EPOPROSTENOL
     Dosage: 53 NG/KG, PER MIN
     Route: 042
     Dates: start: 20161229
  18. ADCIRCA [Concomitant]
     Active Substance: TADALAFIL
  19. KIPRES [Concomitant]
     Active Substance: MONTELUKAST SODIUM
  20. EPOPROSTENOL ACT [Suspect]
     Active Substance: EPOPROSTENOL
     Dosage: 105 NG/KG, PER MIN
     Route: 042
     Dates: start: 20170611
  21. ISODINE [Suspect]
     Active Substance: POVIDONE-IODINE
     Indication: PRODUCT USED FOR UNKNOWN INDICATION
     Route: 065

REACTIONS (7)
  - Device occlusion [Recovered/Resolved]
  - Catheter management [Unknown]
  - Dermatitis contact [Recovering/Resolving]
  - Device deposit issue [Unknown]
  - Injection site phlebitis [Recovering/Resolving]
  - Feeling abnormal [Recovered/Resolved]
  - Palpitations [Recovered/Resolved]

NARRATIVE: CASE EVENT DATE: 201703
